FAERS Safety Report 18532491 (Version 1)
Quarter: 2020Q4

REPORT INFORMATION
  Report Type: Report from Study
  Country: US (occurrence: US)
  Receive Date: 20201123
  Receipt Date: 20201123
  Transmission Date: 20210114
  Serious: No
  Sender: FDA-Public Use
  Company Number: NVSC2020US305215

PATIENT
  Sex: Female

DRUGS (1)
  1. ILARIS [Suspect]
     Active Substance: CANAKINUMAB
     Indication: HYPER IGD SYNDROME
     Dosage: 300MG, ONCE EVERY 6 WEEKS
     Route: 058
     Dates: start: 201301

REACTIONS (2)
  - Headache [Recovered/Resolved]
  - Ulcer [Recovered/Resolved]
